FAERS Safety Report 9877966 (Version 2)
Quarter: 2014Q1

REPORT INFORMATION
  Report Type: Spontaneous
  Country: US (occurrence: US)
  Receive Date: 20140206
  Receipt Date: 20140221
  Transmission Date: 20141002
  Serious: No
  Sender: FDA-Public Use
  Company Number: US-009507513-1402USA000766

PATIENT
  Age: 78 Year
  Sex: Female

DRUGS (5)
  1. OXYTROL FOR WOMEN [Suspect]
     Indication: URINARY INCONTINENCE
     Dosage: 1 DF, Q4D
     Route: 062
     Dates: start: 20140115, end: 20140125
  2. OXYTROL FOR WOMEN [Suspect]
     Indication: POLLAKIURIA
  3. CITRICAL [Concomitant]
     Indication: OSTEOPENIA
     Dosage: UNK, UNKNOWN
  4. TYLENOL [Concomitant]
     Indication: ARTHRALGIA
     Dosage: UNK, UNKNOWN
  5. TYLENOL [Concomitant]
     Indication: OSTEOARTHRITIS

REACTIONS (3)
  - Chest pain [Recovering/Resolving]
  - Dyspepsia [Recovering/Resolving]
  - Hypersensitivity [Recovering/Resolving]
